FAERS Safety Report 6320604-9 (Version None)
Quarter: 2009Q3

REPORT INFORMATION
  Report Type: 
  Country: None (occurrence: None)
  Receive Date: 20090822
  Receipt Date: 20081201
  Transmission Date: 20100115
  Serious: No
  Sender: FDA-Public Use
  Company Number: US-ABBOTT-08P-163-0489258-00

PATIENT
  Sex: Male
  Weight: 118.04 kg

DRUGS (4)
  1. NIASPAN [Suspect]
     Indication: HIGH DENSITY LIPOPROTEIN DECREASED
     Dosage: 2-500 MG PILLS AT BEDTIME
     Route: 048
     Dates: start: 20081001, end: 20081101
  2. NIASPAN [Suspect]
     Indication: BLOOD TRIGLYCERIDES INCREASED
     Dosage: 3-500 MG PILLS AT BEDTIME
     Route: 048
     Dates: start: 20081101
  3. ROSUVASTATIN [Concomitant]
     Indication: BLOOD CHOLESTEROL
     Dosage: DAILY
  4. POTASSIUM SUPPLEMENT [Concomitant]
     Indication: DRUG USE FOR UNKNOWN INDICATION
     Dosage: DAILY

REACTIONS (5)
  - DRY SKIN [None]
  - FLUSHING [None]
  - PAIN [None]
  - SKIN BURNING SENSATION [None]
  - SKIN TIGHTNESS [None]
